FAERS Safety Report 13757242 (Version 1)
Quarter: 2017Q3

REPORT INFORMATION
  Report Type: Spontaneous
  Country: US (occurrence: US)
  Receive Date: 20170716
  Receipt Date: 20170716
  Transmission Date: 20171127
  Serious: Yes (Disabling, Other)
  Sender: FDA-Public Use
  Company Number: None

PATIENT
  Age: 51 Year
  Sex: Male
  Weight: 76.5 kg

DRUGS (2)
  1. FINASTERIDE 1 MG GENERIC PROPECI [Suspect]
     Active Substance: FINASTERIDE
     Indication: ALOPECIA
     Dosage: ?          OTHER STRENGTH:MG;QUANTITY:1 TABLET(S);?
     Route: 048
     Dates: start: 20170101, end: 20170331
  2. MULTI VITAMIN [Concomitant]
     Active Substance: VITAMINS

REACTIONS (8)
  - Dry skin [None]
  - Insomnia [None]
  - Depression [None]
  - Pruritus [None]
  - Inappropriate schedule of drug administration [None]
  - Erectile dysfunction [None]
  - Pain [None]
  - Unevaluable event [None]

NARRATIVE: CASE EVENT DATE: 20170331
